FAERS Safety Report 12501235 (Version 12)
Quarter: 2019Q2

REPORT INFORMATION
  Report Type: Report from Study
  Country: CA (occurrence: CA)
  Receive Date: 20160627
  Receipt Date: 20190401
  Transmission Date: 20190711
  Serious: Yes (Other)
  Sender: FDA-Public Use
  Company Number: CA-BRISTOL-MYERS SQUIBB COMPANY-BMS-2016-025947

PATIENT
  Age: 62 Year
  Sex: Female

DRUGS (3)
  1. ABATACEPT [Suspect]
     Active Substance: ABATACEPT
     Indication: RHEUMATOID ARTHRITIS
     Dosage: 750 MG, Q4WK
     Route: 042
     Dates: start: 20131216
  2. ABATACEPT [Suspect]
     Active Substance: ABATACEPT
     Indication: PRODUCT USED FOR UNKNOWN INDICATION
     Dosage: 750 MG, Q3WK
     Route: 042
     Dates: start: 201808
  3. LEFLUNOMIDE. [Concomitant]
     Active Substance: LEFLUNOMIDE
     Indication: PRODUCT USED FOR UNKNOWN INDICATION
     Route: 065

REACTIONS (15)
  - Eczema [Unknown]
  - Carpal tunnel decompression [Unknown]
  - Pharyngitis [Recovering/Resolving]
  - Postoperative wound infection [Unknown]
  - Alopecia [Unknown]
  - Product dose omission [Unknown]
  - Wound [Unknown]
  - Oral fungal infection [Recovering/Resolving]
  - Gastroenteritis [Recovered/Resolved]
  - Pruritus [Unknown]
  - Parotitis [Unknown]
  - Prescribed underdose [Unknown]
  - Facial pain [Unknown]
  - Off label use [Unknown]
  - Urinary tract infection [Unknown]

NARRATIVE: CASE EVENT DATE: 20160427
